FAERS Safety Report 5065123-5 (Version None)
Quarter: 2006Q3

REPORT INFORMATION
  Report Type: 
  Country: None (occurrence: None)
  Receive Date: 20060727
  Receipt Date: 20060727
  Transmission Date: 20061208
  Serious: Yes (Hospitalization)
  Sender: FDA-Public Use
  Company Number: None

PATIENT
  Age: 16 Year
  Sex: Female
  Weight: 63.5036 kg

DRUGS (1)
  1. TOPAMAX [Suspect]
     Indication: MIGRAINE
     Dosage: 50 MG PO BID [MONTHS}
     Route: 048

REACTIONS (6)
  - CHEST DISCOMFORT [None]
  - CHILLS [None]
  - DYSTONIA [None]
  - HALLUCINATION, AUDITORY [None]
  - HEADACHE [None]
  - TREMOR [None]
